FAERS Safety Report 9124894 (Version 2)
Quarter: 2014Q1

REPORT INFORMATION
  Report Type: Spontaneous
  Country: US (occurrence: US)
  Receive Date: 20130117
  Receipt Date: 20140115
  Transmission Date: 20141002
  Serious: Yes (Other)
  Sender: FDA-Public Use
  Company Number: US-BAYER-2013-005673

PATIENT
  Age: 34 Year
  Sex: Female

DRUGS (6)
  1. YAZ [Suspect]
     Indication: PREMENSTRUAL SYNDROME
     Dosage: UNK
     Dates: start: 200908
  2. YASMIN [Suspect]
     Dosage: UNK
     Dates: start: 200908
  3. LISINOPRIL [Concomitant]
     Indication: BLOOD PRESSURE MANAGEMENT
     Dosage: 5 MG, UNK
     Dates: start: 20100103
  4. HYDROCODONE W/APAP [Concomitant]
     Dosage: 5MG/500MG
     Dates: start: 20100118
  5. PROMETHAZINE [Concomitant]
     Dosage: 25 MG, UNK
     Dates: start: 20100118
  6. OXYCODONE [Concomitant]
     Dosage: UNK
     Dates: start: 20100121

REACTIONS (6)
  - Gallbladder injury [None]
  - Cholecystitis chronic [None]
  - Pain [None]
  - Fear [None]
  - Injury [None]
  - Pain [None]
